FAERS Safety Report 5009135-6 (Version None)
Quarter: 2006Q2

REPORT INFORMATION
  Report Type: 
  Country: None (occurrence: None)
  Receive Date: 20060519
  Receipt Date: 20060509
  Transmission Date: 20061013
  Serious: Yes (Death)
  Sender: FDA-Public Use
  Company Number: 224783

PATIENT
  Sex: 0

DRUGS (1)
  1. ACTILYSE (ALTEPLASE) PWDR + SOLVENT, INFUSION SOLN, 100MG [Suspect]
     Indication: CEREBROVASCULAR ACCIDENT

REACTIONS (1)
  - CEREBRAL HAEMORRHAGE [None]
